FAERS Safety Report 24908064 (Version 3)
Quarter: 2025Q1

REPORT INFORMATION
  Report Type: Spontaneous
  Country: US (occurrence: US)
  Receive Date: 20250131
  Receipt Date: 20250325
  Transmission Date: 20250408
  Serious: Yes (Hospitalization, Other)
  Sender: NOVO NORDISK
  Company Number: US-NOVOPROD-1357057

PATIENT
  Age: 75 Year
  Sex: Female

DRUGS (2)
  1. OZEMPIC [Suspect]
     Active Substance: SEMAGLUTIDE
     Indication: Type 2 diabetes mellitus
     Dosage: 0.5 MG, QW
     Route: 058
  2. OZEMPIC [Suspect]
     Active Substance: SEMAGLUTIDE
     Indication: Type 2 diabetes mellitus
     Route: 058

REACTIONS (9)
  - Transient ischaemic attack [Recovered/Resolved]
  - Cardiac disorder [Unknown]
  - Appetite disorder [Unknown]
  - Ill-defined disorder [Not Recovered/Not Resolved]
  - Visual impairment [Unknown]
  - Decreased appetite [Recovered/Resolved]
  - Weight decreased [Unknown]
  - Constipation [Unknown]
  - Injection site discomfort [Unknown]

NARRATIVE: CASE EVENT DATE: 20240703
